FAERS Safety Report 4970247-4 (Version None)
Quarter: 2006Q2

REPORT INFORMATION
  Report Type: 
  Country: None (occurrence: None)
  Receive Date: 20060406
  Receipt Date: 20060317
  Transmission Date: 20061013
  Serious: Yes (Hospitalization, Other)
  Sender: FDA-Public Use
  Company Number: US200602004774

PATIENT
  Age: 67 Year
  Sex: Female
  Weight: 72.1 kg

DRUGS (3)
  1. HUMATROPE [Suspect]
     Indication: HYPOPITUITARISM
     Dosage: 0.5 MG, DAILY (1/D)
  2. HUMATROPEN (HUMATROPEN) PEN,REUSABLE [Concomitant]
  3. SKELAXIN [Concomitant]

REACTIONS (11)
  - ASTHENIA [None]
  - BLOOD GLUCOSE INCREASED [None]
  - DIABETES MELLITUS [None]
  - FALL [None]
  - INTERVERTEBRAL DISC DISORDER [None]
  - LIGAMENT INJURY [None]
  - MOBILITY DECREASED [None]
  - NERVE COMPRESSION [None]
  - PAIN [None]
  - PHARMACEUTICAL PRODUCT COMPLAINT [None]
  - SPINAL COMPRESSION FRACTURE [None]
